FAERS Safety Report 25435515 (Version 1)
Quarter: 2025Q2

REPORT INFORMATION
  Report Type: Report from Study
  Country: CA (occurrence: CA)
  Receive Date: 20250613
  Receipt Date: 20250613
  Transmission Date: 20250717
  Serious: Yes (Death, Hospitalization, Other)
  Sender: CSL BEHRING
  Company Number: CA-BEH-2024173780

PATIENT
  Age: 79 Year
  Sex: Male
  Weight: 81 kg

DRUGS (8)
  1. HIZENTRA [Suspect]
     Active Substance: HUMAN IMMUNOGLOBULIN G
     Indication: Secondary immunodeficiency
     Dosage: 8 G, QW
     Route: 065
     Dates: start: 20240611
  2. HIZENTRA [Suspect]
     Active Substance: HUMAN IMMUNOGLOBULIN G
     Dosage: 8 G, QW
     Route: 065
     Dates: start: 20240611
  3. HIZENTRA [Suspect]
     Active Substance: HUMAN IMMUNOGLOBULIN G
     Route: 065
     Dates: start: 20240619
  4. HIZENTRA [Suspect]
     Active Substance: HUMAN IMMUNOGLOBULIN G
     Dosage: 8 G, QW
     Route: 065
     Dates: start: 202410
  5. HIZENTRA [Suspect]
     Active Substance: HUMAN IMMUNOGLOBULIN G
     Dosage: 8 G, QW
     Route: 065
     Dates: start: 20240611
  6. HIZENTRA [Suspect]
     Active Substance: HUMAN IMMUNOGLOBULIN G
     Dosage: 8 G, QW
     Route: 065
  7. HIZENTRA [Suspect]
     Active Substance: HUMAN IMMUNOGLOBULIN G
     Dosage: 8 G, QW
     Route: 065
     Dates: start: 20240611
  8. HIZENTRA [Suspect]
     Active Substance: HUMAN IMMUNOGLOBULIN G
     Dosage: 8 G, QW
     Route: 058
     Dates: start: 20240611, end: 20250322

REACTIONS (19)
  - Death [Fatal]
  - Gastroenteritis [Unknown]
  - Therapy interrupted [Unknown]
  - Venous injury [Unknown]
  - Venous injury [Unknown]
  - Cataract [Unknown]
  - Injection site swelling [Unknown]
  - Memory impairment [Unknown]
  - Diarrhoea [Unknown]
  - Injection site swelling [Unknown]
  - Fall [Unknown]
  - Head injury [Unknown]
  - Injection site swelling [Unknown]
  - Wrong technique in product usage process [Unknown]
  - Head injury [Recovered/Resolved]
  - Injection site oedema [Unknown]
  - Wrong technique in product usage process [Unknown]
  - Diarrhoea [Unknown]
  - Diarrhoea [Unknown]

NARRATIVE: CASE EVENT DATE: 20240601
